FAERS Safety Report 16436013 (Version 1)
Quarter: 2019Q2

REPORT INFORMATION
  Report Type: Spontaneous
  Country: US (occurrence: US)
  Receive Date: 20190614
  Receipt Date: 20190614
  Transmission Date: 20190711
  Serious: No
  Sender: FDA-Public Use
  Company Number: US-JNJFOC-20170526705

PATIENT
  Age: 88 Year
  Sex: Male
  Weight: 72.58 kg

DRUGS (1)
  1. TYLENOL REGULAR STRENGTH [Suspect]
     Active Substance: ACETAMINOPHEN
     Indication: HEADACHE
     Dosage: 1-2 TABLETS, 1-2X PER DAY
     Route: 048

REACTIONS (1)
  - Incorrect dose administered [Unknown]
